FAERS Safety Report 21584675 (Version 7)
Quarter: 2023Q2

REPORT INFORMATION
  Report Type: Report from Study
  Country: US (occurrence: US)
  Receive Date: 20221111
  Receipt Date: 20230522
  Transmission Date: 20230721
  Serious: Yes (Other)
  Sender: FDA-Public Use
  Company Number: US-002147023-NVSC2022US255054

PATIENT
  Sex: Female

DRUGS (1)
  1. COSENTYX [Suspect]
     Active Substance: SECUKINUMAB
     Indication: Ankylosing spondylitis
     Dosage: 150 MG, QMO
     Route: 058

REACTIONS (9)
  - Narcolepsy [Unknown]
  - Behcet^s syndrome [Unknown]
  - Pustule [Unknown]
  - Myalgia [Unknown]
  - Vitamin D deficiency [Recovering/Resolving]
  - Ear infection [Unknown]
  - Pharyngeal ulceration [Unknown]
  - Conjunctivitis [Unknown]
  - Drug ineffective [Unknown]
